FAERS Safety Report 16240901 (Version 1)
Quarter: 2019Q2

REPORT INFORMATION
  Report Type: Spontaneous
  Country: US (occurrence: US)
  Receive Date: 20190425
  Receipt Date: 20190425
  Transmission Date: 20190711
  Serious: Yes (Other)
  Sender: FDA-Public Use
  Company Number: US-AKORN PHARMACEUTICALS-2019AKN00807

PATIENT
  Sex: Female

DRUGS (2)
  1. MYORISAN [Suspect]
     Active Substance: ISOTRETINOIN
     Dosage: UNK
     Dates: end: 20190125
  2. MYORISAN [Suspect]
     Active Substance: ISOTRETINOIN
     Dosage: UNK

REACTIONS (2)
  - Skin disorder [Unknown]
  - Suicidal ideation [Unknown]
